FAERS Safety Report 9051188 (Version 2)
Quarter: 2013Q1

REPORT INFORMATION
  Report Type: Spontaneous
  Country: CH (occurrence: CH)
  Receive Date: 20130206
  Receipt Date: 20130215
  Transmission Date: 20140127
  Serious: Yes (Death)
  Sender: FDA-Public Use
  Company Number: CH-BRISTOL-MYERS SQUIBB COMPANY-17346461

PATIENT
  Age: 64 Year
  Sex: Male

DRUGS (5)
  1. YERVOY [Suspect]
     Indication: MALIGNANT MELANOMA
     Dosage: LAST DOSE ON 21NOV12
     Dates: start: 20121011
  2. FENTANYL [Concomitant]
  3. CLEXANE [Concomitant]
  4. ASPIRIN CARDIO [Concomitant]
  5. MOVICOL [Concomitant]

REACTIONS (2)
  - Malignant neoplasm progression [Fatal]
  - Lung infection [Fatal]
